FAERS Safety Report 5911050-8 (Version None)
Quarter: 2008Q4

REPORT INFORMATION
  Report Type: 
  Country: None (occurrence: None)
  Receive Date: 20081007
  Receipt Date: 20080924
  Transmission Date: 20090506
  Serious: Yes (Other)
  Sender: FDA-Public Use
  Company Number: BR-ELI_LILLY_AND_COMPANY-BR200809005793

PATIENT
  Sex: Female
  Weight: 49 kg

DRUGS (4)
  1. EVISTA [Suspect]
     Indication: OSTEOPOROSIS
     Dosage: 60 MG, UNKNOWN
     Route: 048
     Dates: start: 20030101
  2. LIPITOR [Concomitant]
     Indication: BLOOD CHOLESTEROL
     Dosage: UNK, UNKNOWN
     Route: 065
  3. RIVOTRIL [Concomitant]
     Indication: SEDATIVE THERAPY
     Dosage: UNK, UNKNOWN
     Route: 065
  4. CIMICIFUGA RACEMOSA [Concomitant]
     Indication: MENOPAUSE
     Dosage: UNK, UNKNOWN
     Route: 065

REACTIONS (4)
  - DYSPEPSIA [None]
  - GASTROOESOPHAGEAL REFLUX DISEASE [None]
  - HIATUS HERNIA [None]
  - WEIGHT DECREASED [None]
